FAERS Safety Report 7005333-0 (Version None)
Quarter: 2010Q3

REPORT INFORMATION
  Report Type: 
  Country: None (occurrence: None)
  Receive Date: 20100921
  Receipt Date: 20100907
  Transmission Date: 20110219
  Serious: Yes (Hospitalization, Other)
  Sender: FDA-Public Use
  Company Number: US-BAYER-200943252NA

PATIENT
  Age: 39 Year
  Sex: Female
  Weight: 59 kg

DRUGS (2)
  1. YASMIN [Suspect]
     Indication: CONTRACEPTION
     Dosage: DISCREPANCIES WERE NOTED : MEDICAL RECORDS STATES ^NOT ON ESTROGEN PILL^ AT TIME OF EVENT
     Route: 048
     Dates: start: 20050801, end: 20060801
  2. YAZ [Suspect]
     Indication: PRODUCT USED FOR UNKNOWN INDICATION
     Dosage: DISCREPANCIES WERE NOTED : MEDICAL RECORDS STATES ^NOT ON ESTROGEN PILL^ AT TIME OF EVENT
     Route: 048
     Dates: start: 20050101, end: 20060101

REACTIONS (8)
  - AMNESIA [None]
  - CEREBRAL ARTERY THROMBOSIS [None]
  - CEREBRAL INFARCTION [None]
  - COGNITIVE DISORDER [None]
  - HEMICEPHALALGIA [None]
  - HEMIPARESIS [None]
  - PULMONARY EMBOLISM [None]
  - SPEECH DISORDER [None]
